FAERS Safety Report 7134078-1 (Version None)
Quarter: 2010Q4

REPORT INFORMATION
  Report Type: 
  Country: None (occurrence: None)
  Receive Date: 20101203
  Receipt Date: 20101125
  Transmission Date: 20110411
  Serious: Yes (Other)
  Sender: FDA-Public Use
  Company Number: IT-JNJFOC-20101108375

PATIENT
  Sex: Female

DRUGS (1)
  1. TRIASPORIN [Suspect]
     Indication: CANDIDIASIS
     Route: 065

REACTIONS (4)
  - ABDOMINAL DISTENSION [None]
  - ARRHYTHMIA [None]
  - FLATULENCE [None]
  - VAGUS NERVE DISORDER [None]
